FAERS Safety Report 6968013-3 (Version None)
Quarter: 2010Q3

REPORT INFORMATION
  Report Type: 
  Country: None (occurrence: None)
  Receive Date: 20100907
  Receipt Date: 20100825
  Transmission Date: 20110219
  Serious: Yes (Hospitalization)
  Sender: FDA-Public Use
  Company Number: A0879158A

PATIENT
  Age: 59 Year
  Sex: Male

DRUGS (1)
  1. AVANDIA [Suspect]
     Dates: start: 20050101, end: 20060501

REACTIONS (2)
  - CARDIAC DISORDER [None]
  - CARDIAC FAILURE CONGESTIVE [None]
